FAERS Safety Report 16951663 (Version 2)
Quarter: 2020Q1

REPORT INFORMATION
  Report Type: Spontaneous
  Country: DE (occurrence: DE)
  Receive Date: 20191023
  Receipt Date: 20200211
  Transmission Date: 20200409
  Serious: Yes (Hospitalization, Other)
  Sender: FDA-Public Use
  Company Number: DE-BAYER-2019-186125

PATIENT
  Age: 22 Year
  Sex: Female
  Weight: 51.5 kg

DRUGS (1)
  1. KYLEENA [Suspect]
     Active Substance: LEVONORGESTREL
     Indication: INTRAUTERINE CONTRACEPTION
     Dosage: 17.5 ?G PER DAY CONTINUOUSLY
     Route: 015
     Dates: start: 20180913

REACTIONS (12)
  - Impaired work ability [Unknown]
  - Intra-abdominal haemorrhage [Recovering/Resolving]
  - Haemorrhage [Recovering/Resolving]
  - Abdominal pain lower [Recovering/Resolving]
  - Mental disorder [Unknown]
  - Cardiovascular disorder [Recovering/Resolving]
  - Ruptured ectopic pregnancy [Recovering/Resolving]
  - Pain [Recovering/Resolving]
  - Abortion of ectopic pregnancy [Recovered/Resolved]
  - Vomiting [Recovering/Resolving]
  - Nausea [Recovering/Resolving]
  - Back pain [Recovering/Resolving]

NARRATIVE: CASE EVENT DATE: 2019
